FAERS Safety Report 6103397-X (Version None)
Quarter: 2009Q1

REPORT INFORMATION
  Report Type: 
  Country: None (occurrence: None)
  Receive Date: 20090305
  Receipt Date: 20090225
  Transmission Date: 20090719
  Serious: Yes (Other)
  Sender: FDA-Public Use
  Company Number: FR-BAYER-200915056GPV

PATIENT
  Age: 82 Year
  Sex: Female
  Weight: 73 kg

DRUGS (10)
  1. NEXAVAR [Suspect]
     Indication: RENAL CANCER
     Dosage: TOTAL DAILY DOSE: 800 MG
     Route: 048
     Dates: start: 20071002, end: 20071005
  2. NEXAVAR [Suspect]
     Route: 048
     Dates: start: 20071022, end: 20071116
  3. NEXAVAR [Suspect]
     Route: 048
     Dates: start: 20080107, end: 20080217
  4. NEXAVAR [Suspect]
     Route: 048
     Dates: start: 20080220
  5. SOTALEX [Concomitant]
     Indication: DRUG USE FOR UNKNOWN INDICATION
     Route: 065
     Dates: start: 20060101
  6. FLUDEX [Concomitant]
     Indication: DRUG USE FOR UNKNOWN INDICATION
     Route: 065
     Dates: start: 20060101, end: 20080101
  7. STRESAM [Concomitant]
     Indication: DRUG USE FOR UNKNOWN INDICATION
     Route: 048
  8. ODRIK [Concomitant]
     Indication: DRUG USE FOR UNKNOWN INDICATION
     Route: 065
     Dates: start: 20071001, end: 20071001
  9. ODRIK [Concomitant]
     Route: 065
     Dates: start: 20071201
  10. HYPERIUM [Concomitant]
     Indication: DRUG USE FOR UNKNOWN INDICATION
     Route: 065
     Dates: start: 20071116, end: 20071201

REACTIONS (9)
  - ANOREXIA [None]
  - HEADACHE [None]
  - HYPERTENSION [None]
  - HYPOTENSION [None]
  - METRORRHAGIA [None]
  - NEUROPATHY PERIPHERAL [None]
  - SPEECH DISORDER [None]
  - TRANSIENT ISCHAEMIC ATTACK [None]
  - VERTIGO [None]
